FAERS Safety Report 8282208-0 (Version None)
Quarter: 2012Q2

REPORT INFORMATION
  Report Type: 
  Country: None (occurrence: None)
  Receive Date: 20120413
  Receipt Date: 20120405
  Transmission Date: 20120825
  Serious: Yes (Other)
  Sender: FDA-Public Use
  Company Number: US-AMGEN-USASP2012021819

PATIENT
  Age: 60 Year
  Sex: Female

DRUGS (3)
  1. ENBREL [Suspect]
     Indication: RHEUMATOID ARTHRITIS
     Dosage: 50 MG, QWK
     Dates: start: 20120217
  2. METHOTREXATE [Concomitant]
     Dosage: UNK
  3. BENADRYL [Concomitant]
     Dosage: UNK

REACTIONS (7)
  - INJECTION SITE RASH [None]
  - CELLULITIS [None]
  - INJECTION SITE HAEMATOMA [None]
  - HAEMORRHAGIC DIATHESIS [None]
  - CONTUSION [None]
  - INJECTION SITE SWELLING [None]
  - INJECTION SITE ERYTHEMA [None]
